FAERS Safety Report 5402173-0 (Version None)
Quarter: 2007Q3

REPORT INFORMATION
  Report Type: 
  Country: None (occurrence: None)
  Receive Date: 20070730
  Receipt Date: 20070723
  Transmission Date: 20080115
  Serious: Yes (Other)
  Sender: FDA-Public Use
  Company Number: 2007SP014787

PATIENT
  Age: 55 Year
  Sex: Male

DRUGS (3)
  1. PEG-INTRON [Suspect]
     Indication: HEPATITIS C
     Dosage: ; SC
     Route: 058
     Dates: start: 20070504
  2. RIBAVIRIN [Suspect]
     Indication: HEPATITIS C
     Dosage: ; PO
     Route: 048
     Dates: start: 20070504
  3. INSULIN [Suspect]
     Indication: DIABETES MELLITUS

REACTIONS (12)
  - BLOOD GLUCOSE FLUCTUATION [None]
  - CHEST PAIN [None]
  - DIZZINESS [None]
  - DYSKINESIA [None]
  - DYSPNOEA [None]
  - NAUSEA [None]
  - NEUROPATHY [None]
  - ORAL DISCOMFORT [None]
  - PARAESTHESIA ORAL [None]
  - RED BLOOD CELL COUNT DECREASED [None]
  - SWOLLEN TONGUE [None]
  - WHITE BLOOD CELL COUNT DECREASED [None]
